FAERS Safety Report 9468340 (Version 2)
Quarter: 2013Q3

REPORT INFORMATION
  Report Type: Report from Study
  Country: US (occurrence: US)
  Receive Date: 20130821
  Receipt Date: 20130909
  Transmission Date: 20140515
  Serious: Yes (Other)
  Sender: FDA-Public Use
  Company Number: US-ACTELION-A-NJ2013-87295

PATIENT
  Age: 46 Year
  Sex: Male

DRUGS (1)
  1. VELETRI [Suspect]
     Indication: PULMONARY ARTERIAL HYPERTENSION
     Dosage: 12 NG/KG, PER MIN
     Route: 042
     Dates: start: 20130225

REACTIONS (3)
  - Pneumonia [Recovered/Resolved]
  - Malaise [Recovered/Resolved]
  - Catheter site pain [Unknown]
